FAERS Safety Report 10228704 (Version 1)
Quarter: 2014Q2

REPORT INFORMATION
  Report Type: Spontaneous
  Country: US (occurrence: US)
  Receive Date: 20140610
  Receipt Date: 20140610
  Transmission Date: 20141212
  Serious: No
  Sender: FDA-Public Use
  Company Number: US-ENDO PHARMACEUTICALS INC.-LORA20140007

PATIENT
  Sex: Female

DRUGS (2)
  1. LORAZEPAM TABLETS 2MG [Suspect]
     Indication: PRODUCT USED FOR UNKNOWN INDICATION
     Route: 048
  2. LORAZEPAM TABLETS 2MG [Suspect]
     Route: 048

REACTIONS (4)
  - Feeling jittery [Unknown]
  - Pruritus [Unknown]
  - Formication [Unknown]
  - Drug dose omission [Unknown]
